FAERS Safety Report 6337045-0 (Version None)
Quarter: 2009Q3

REPORT INFORMATION
  Report Type: 
  Country: None (occurrence: None)
  Receive Date: 20090831
  Receipt Date: 20090820
  Transmission Date: 20100115
  Serious: Yes (Other)
  Sender: FDA-Public Use
  Company Number: 2009-03395

PATIENT
  Age: 51 Year
  Sex: Female
  Weight: 58.2 kg

DRUGS (16)
  1. VELCADE [Suspect]
     Indication: MANTLE CELL LYMPHOMA
     Dosage: 1.3 MG/M2,IV BOLUS
     Route: 041
     Dates: start: 20080414, end: 20080619
  2. RITUXIMAB(RITUXIMAB) INJECTION, 375MG/M2 [Suspect]
     Indication: MANTLE CELL LYMPHOMA
     Dosage: 375 MG/M2, INTRAVENOUS
     Route: 042
     Dates: start: 20080414, end: 20080619
  3. CYCLOPHOSPHAMIDE [Concomitant]
     Indication: MANTLE CELL LYMPHOMA
     Dosage: 300 MG/M2, INTRAVENOUS
     Route: 042
     Dates: start: 20080414, end: 20080625
  4. DOXORUBICIN HCL [Suspect]
     Indication: MANTLE CELL LYMPHOMA
     Dosage: 25 MG/M2, INTRAVENOUS
     Route: 042
     Dates: start: 20080414, end: 20080625
  5. VINCRISTINE [Suspect]
     Indication: MANTLE CELL LYMPHOMA
     Dosage: 1 MG, INTRAVENOUS
     Route: 042
     Dates: start: 20080414, end: 20080624
  6. DEXAMETHASONE TAB [Suspect]
     Indication: MANTLE CELL LYMPHOMA
     Dosage: 40 MG
     Dates: start: 20080414, end: 20080623
  7. NEULASTA [Suspect]
     Indication: MANTLE CELL LYMPHOMA
     Dosage: 6 MG, SUBCUTANEOUS
     Route: 058
     Dates: start: 20080414, end: 20080626
  8. ACYCLOVIR [Concomitant]
  9. CIPROFLOXACIN (CIPROFLOXACIN) [Concomitant]
  10. COMPAZINE [Concomitant]
  11. DILAUDID [Concomitant]
  12. DIPHENHYDRAMINE HCL [Concomitant]
  13. CYMBALTA HYDROCODONE (HYDROCODONE) [Concomitant]
  14. LEVOFLOXACIN [Concomitant]
  15. MODAFINIL [Concomitant]
  16. TIZANIDINE HCL [Concomitant]

REACTIONS (12)
  - ACTIVITIES OF DAILY LIVING IMPAIRED [None]
  - CANDIDIASIS [None]
  - CYSTITIS [None]
  - DECREASED APPETITE [None]
  - HAEMATOCRIT DECREASED [None]
  - INSOMNIA [None]
  - LYMPHOPENIA [None]
  - MUCOSAL INFLAMMATION [None]
  - OPPORTUNISTIC INFECTION [None]
  - PROTEINURIA [None]
  - STOMATITIS [None]
  - WEIGHT DECREASED [None]
